FAERS Safety Report 6735989-9 (Version None)
Quarter: 2010Q2

REPORT INFORMATION
  Report Type: 
  Country: None (occurrence: None)
  Receive Date: 20100521
  Receipt Date: 20100512
  Transmission Date: 20101027
  Serious: Yes (Other)
  Sender: FDA-Public Use
  Company Number: US-AMGEN-KDC412066

PATIENT
  Sex: Female
  Weight: 109 kg

DRUGS (15)
  1. ENBREL [Suspect]
     Indication: PSORIATIC ARTHROPATHY
     Dates: start: 20090717, end: 20090817
  2. PRENATAL VITAMINS [Concomitant]
     Route: 048
     Dates: start: 20090717, end: 20100410
  3. VITAMIN D3 [Concomitant]
     Route: 048
     Dates: start: 20090717, end: 20100101
  4. VITAMIN K TAB [Concomitant]
     Route: 048
     Dates: start: 20090717, end: 20090817
  5. FISH OIL [Concomitant]
     Route: 048
     Dates: start: 20090717, end: 20100404
  6. CHOLINE [Concomitant]
     Route: 048
     Dates: start: 20091201, end: 20100410
  7. SELENIUM [Concomitant]
     Route: 048
     Dates: start: 20090717, end: 20090817
  8. SYNTHROID [Concomitant]
     Route: 048
     Dates: start: 20090717, end: 20100410
  9. PROGESTERONE [Concomitant]
     Route: 067
     Dates: start: 20090803, end: 20091005
  10. TYLENOL [Concomitant]
     Route: 048
     Dates: start: 20090714, end: 20100110
  11. ASPIRIN [Concomitant]
     Route: 048
     Dates: start: 20090803, end: 20090918
  12. CORTISONE [Concomitant]
     Route: 048
     Dates: start: 20091110, end: 20100410
  13. INFLUENSAVACCIN [Concomitant]
     Dates: start: 20091102, end: 20091102
  14. INFLUENZA A (H1N1) MONOVALENT VACCINE [Concomitant]
     Dates: start: 20091019, end: 20091019
  15. HYALURONIC ACID [Concomitant]
     Route: 048
     Dates: start: 20090717, end: 20091110

REACTIONS (1)
  - UTERINE HAEMORRHAGE [None]
